FAERS Safety Report 7364737-7 (Version None)
Quarter: 2011Q1

REPORT INFORMATION
  Report Type: 
  Country: None (occurrence: None)
  Receive Date: 20110321
  Receipt Date: 20110310
  Transmission Date: 20110831
  Serious: Yes (Other)
  Sender: FDA-Public Use
  Company Number: US-ASTRAZENECA-2011SE13487

PATIENT
  Sex: Female

DRUGS (1)
  1. ATACAND [Suspect]
     Indication: CARDIAC FAILURE
     Route: 048
     Dates: start: 20090101

REACTIONS (4)
  - CARDIAC FAILURE [None]
  - EJECTION FRACTION DECREASED [None]
  - CARDIAC ARREST [None]
  - DRUG DOSE OMISSION [None]
